FAERS Safety Report 25205901 (Version 1)
Quarter: 2025Q2

REPORT INFORMATION
  Report Type: Spontaneous
  Country: US (occurrence: US)
  Receive Date: 20250417
  Receipt Date: 20250417
  Transmission Date: 20250716
  Serious: No
  Sender: ABBVIE
  Company Number: US-ABBVIE-6225663

PATIENT
  Sex: Male
  Weight: 81.646 kg

DRUGS (2)
  1. SKYRIZI [Suspect]
     Active Substance: RISANKIZUMAB-RZAA
     Indication: Psoriasis
     Route: 058
     Dates: start: 2024
  2. INDOMETHACIN [Concomitant]
     Active Substance: INDOMETHACIN
     Indication: Headache

REACTIONS (3)
  - Injection site haemorrhage [Not Recovered/Not Resolved]
  - Device issue [Not Recovered/Not Resolved]
  - Psoriasis [Not Recovered/Not Resolved]

NARRATIVE: CASE EVENT DATE: 20250301
